FAERS Safety Report 6267889-5 (Version None)
Quarter: 2009Q3

REPORT INFORMATION
  Report Type: 
  Country: None (occurrence: None)
  Receive Date: 20090710
  Receipt Date: 20090710
  Transmission Date: 20100115
  Serious: No
  Sender: FDA-Public Use
  Company Number: None

PATIENT
  Sex: Female
  Weight: 55.7924 kg

DRUGS (1)
  1. ZOCOR [Suspect]

REACTIONS (6)
  - ASTHENIA [None]
  - FEAR [None]
  - HEART RATE IRREGULAR [None]
  - INFLAMMATION [None]
  - INTERVERTEBRAL DISC DISORDER [None]
  - MYALGIA [None]
